FAERS Safety Report 17589523 (Version 2)
Quarter: 2021Q2

REPORT INFORMATION
  Report Type: Spontaneous
  Country: US (occurrence: US)
  Receive Date: 20200327
  Receipt Date: 20210413
  Transmission Date: 20210716
  Serious: No
  Sender: FDA-Public Use
  Company Number: US-ALLERGAN-1922417US

PATIENT
  Sex: Female

DRUGS (1)
  1. LUMIGAN [Suspect]
     Active Substance: BIMATOPROST
     Indication: GLAUCOMA
     Dosage: UNK
     Route: 047
     Dates: start: 201903

REACTIONS (3)
  - Dry throat [Unknown]
  - Dyspepsia [Not Recovered/Not Resolved]
  - Increased upper airway secretion [Unknown]

NARRATIVE: CASE EVENT DATE: 201904
